FAERS Safety Report 9364068 (Version 7)
Quarter: 2013Q4

REPORT INFORMATION
  Report Type: Spontaneous
  Country: US (occurrence: US)
  Receive Date: 20130624
  Receipt Date: 20131218
  Transmission Date: 20140711
  Serious: Yes (Hospitalization, Other)
  Sender: FDA-Public Use
  Company Number: US-009507513-1306USA008996

PATIENT
  Sex: Female
  Weight: 71.66 kg

DRUGS (4)
  1. FOSAMAX [Suspect]
     Indication: OSTEOPOROSIS PROPHYLAXIS
     Dosage: 70 MG, UNK
     Route: 048
     Dates: end: 20110422
  2. FOSAMAX [Suspect]
     Dosage: 5 MG, DAILY
     Route: 048
  3. ALENDRONATE SODIUM [Suspect]
     Dosage: 70 MG, UNK
  4. VIOXX [Suspect]
     Route: 048

REACTIONS (31)
  - Femur fracture [Unknown]
  - Intramedullary rod insertion [Unknown]
  - Complication of device insertion [Unknown]
  - Procedural haemorrhage [Unknown]
  - Internal fixation of fracture [Unknown]
  - Basal cell carcinoma [Unknown]
  - Colon cancer [Unknown]
  - Low turnover osteopathy [Unknown]
  - Fracture malunion [Unknown]
  - Device failure [Unknown]
  - Adverse event [Unknown]
  - Local swelling [Unknown]
  - Contusion [Unknown]
  - Varicose vein [Unknown]
  - Fibrocystic breast disease [Unknown]
  - Cholelithiasis [Unknown]
  - Peptic ulcer [Unknown]
  - Gastrointestinal ulcer [Unknown]
  - Colitis [Unknown]
  - Large intestine polyp [Unknown]
  - Arthroscopy [Unknown]
  - Hysterectomy [Unknown]
  - Breath sounds abnormal [Unknown]
  - Gastrointestinal sounds abnormal [Unknown]
  - Osteopenia [Unknown]
  - Bursitis [Unknown]
  - Osteoarthritis [Unknown]
  - Arthralgia [Unknown]
  - Gastrooesophageal reflux disease [Unknown]
  - Oesophageal stenosis [Unknown]
  - Gastritis [Unknown]
